FAERS Safety Report 24545765 (Version 2)
Quarter: 2025Q3

REPORT INFORMATION
  Report Type: Report from Study
  Country: JP (occurrence: JP)
  Receive Date: 20241024
  Receipt Date: 20250907
  Transmission Date: 20251020
  Serious: Yes (Other)
  Sender: UCB
  Company Number: JP-UCBJ-CD202409579UCBPHAPROD

PATIENT
  Age: 22 Year
  Sex: Female

DRUGS (5)
  1. FENFLURAMINE HYDROCHLORIDE [Suspect]
     Active Substance: FENFLURAMINE HYDROCHLORIDE
     Indication: Lennox-Gastaut syndrome
     Dosage: 0.06 MILLIGRAM/KILOGRAM, ONCE DAILY (QD)
     Route: 048
     Dates: start: 20240619
  2. VALPROATE SODIUM [Concomitant]
     Active Substance: VALPROATE SODIUM
     Indication: Product used for unknown indication
  3. ZONISAMIDE [Concomitant]
     Active Substance: ZONISAMIDE
     Indication: Product used for unknown indication
  4. LAMOTRIGINE [Concomitant]
     Active Substance: LAMOTRIGINE
     Indication: Product used for unknown indication
  5. PERAMPANEL [Concomitant]
     Active Substance: PERAMPANEL
     Indication: Product used for unknown indication

REACTIONS (5)
  - Depressed level of consciousness [Unknown]
  - Somnolence [Unknown]
  - Decreased appetite [Unknown]
  - Prescribed underdose [Unknown]
  - Off label use [Unknown]

NARRATIVE: CASE EVENT DATE: 20240619
